FAERS Safety Report 22661441 (Version 1)
Quarter: 2023Q2

REPORT INFORMATION
  Report Type: Spontaneous
  Country: IT (occurrence: IT)
  Receive Date: 20230630
  Receipt Date: 20230630
  Transmission Date: 20230722
  Serious: Yes (Other)
  Sender: FDA-Public Use
  Company Number: None

PATIENT
  Age: 72 Year
  Sex: Male
  Weight: 77 kg

DRUGS (1)
  1. ONTRUZANT [Suspect]
     Active Substance: TRASTUZUMAB-DTTB
     Indication: Oesophageal adenocarcinoma recurrent
     Dosage: DOSAGE: 300 UNIT OF MEASUREMENT: MILLIGRAMS FREQUENCY OF ADMINISTRATION: CYCLIC ROUTE OF ADMINISTRAT
     Route: 042
     Dates: start: 20230523, end: 20230523

REACTIONS (2)
  - Chills [Recovered/Resolved]
  - Product use in unapproved indication [Unknown]

NARRATIVE: CASE EVENT DATE: 20230523
